FAERS Safety Report 8810697 (Version 1)
Quarter: 2012Q4

REPORT INFORMATION
  Report Type: Spontaneous
  Country: US (occurrence: None)
  Receive Date: 20120924
  Receipt Date: 20120924
  Transmission Date: 20130627
  Serious: Yes (Life-Threatening)
  Sender: FDA-Public Use
  Company Number: None

PATIENT
  Sex: Female
  Weight: 74.84 kg

DRUGS (2)
  1. BYSTOLIC [Suspect]
     Indication: BLOOD PRESSURE HIGH
     Route: 048
     Dates: start: 201202
  2. IRBESARTAN [Suspect]
     Route: 048

REACTIONS (7)
  - Dyspnoea [None]
  - Heart rate irregular [None]
  - Fatigue [None]
  - Nausea [None]
  - Sleep disorder [None]
  - Muscle disorder [None]
  - Fall [None]
